FAERS Safety Report 5192048-7 (Version None)
Quarter: 2006Q4

REPORT INFORMATION
  Report Type: 
  Country: None (occurrence: None)
  Receive Date: 20061221
  Receipt Date: 20061221
  Transmission Date: 20070319
  Serious: No
  Sender: FDA-Public Use
  Company Number: None

PATIENT
  Age: 54 Year
  Sex: Male
  Weight: 73 kg

DRUGS (6)
  1. MOMETASONE FUROATE [Suspect]
  2. FORMOTEROL FUMARATE [Concomitant]
  3. LEVALBUTEROL TART [Concomitant]
  4. FLUNISOLIDE [Concomitant]
  5. ALBUTEROL SULFATE AND IPRATROPIUM BROMIDE [Concomitant]
  6. SIMVASTATIN [Concomitant]

REACTIONS (1)
  - DEPRESSION [None]
